FAERS Safety Report 23709661 (Version 1)
Quarter: 2024Q2

REPORT INFORMATION
  Report Type: Spontaneous
  Country: US (occurrence: US)
  Receive Date: 20240404
  Receipt Date: 20240404
  Transmission Date: 20240715
  Serious: Yes (Other)
  Sender: FDA-Public Use
  Company Number: US-BRISTOL-MYERS SQUIBB COMPANY-2024-053901

PATIENT
  Age: 75 Year
  Sex: Male
  Weight: 74.39 kg

DRUGS (1)
  1. REVLIMID [Suspect]
     Active Substance: LENALIDOMIDE
     Indication: Plasma cell myeloma
     Dosage: 2WKSON,1WKOFF
     Route: 048

REACTIONS (6)
  - Neuropathy peripheral [Unknown]
  - Gastrointestinal disorder [Unknown]
  - Fatigue [Unknown]
  - Headache [Unknown]
  - Neck pain [Unknown]
  - Off label use [Unknown]
